FAERS Safety Report 24108420 (Version 1)
Quarter: 2024Q3

REPORT INFORMATION
  Report Type: Spontaneous
  Country: RO (occurrence: RO)
  Receive Date: 20240718
  Receipt Date: 20240718
  Transmission Date: 20241017
  Serious: Yes (Death, Other)
  Sender: ROCHE
  Company Number: RO-ROCHE-10000029618

PATIENT
  Age: 37 Year
  Sex: Male

DRUGS (1)
  1. EVRYSDI [Suspect]
     Active Substance: RISDIPLAM
     Indication: Spinal muscular atrophy
     Route: 048
     Dates: start: 202302

REACTIONS (5)
  - Kyphoscoliosis [Unknown]
  - Deformity thorax [Unknown]
  - Respiratory failure [Unknown]
  - COVID-19 [Unknown]
  - Pneumonia [Fatal]

NARRATIVE: CASE EVENT DATE: 20240622
